FAERS Safety Report 7243023-X (Version None)
Quarter: 2011Q1

REPORT INFORMATION
  Report Type: 
  Country: None (occurrence: None)
  Receive Date: 20110125
  Receipt Date: 20100915
  Transmission Date: 20110831
  Serious: No
  Sender: FDA-Public Use
  Company Number: US-AMGEN-KDL438446

PATIENT
  Sex: Female

DRUGS (2)
  1. PANADEINE CO [Concomitant]
     Dosage: UNK UNK, TID
  2. PROLIA [Suspect]
     Indication: OSTEOPOROSIS POSTMENOPAUSAL
     Dosage: 60 MG, Q6MO
     Dates: start: 20100801

REACTIONS (4)
  - CRYING [None]
  - PAIN [None]
  - BONE PAIN [None]
  - MYALGIA [None]
